FAERS Safety Report 6467461-8 (Version None)
Quarter: 2009Q4

REPORT INFORMATION
  Report Type: 
  Country: None (occurrence: None)
  Receive Date: 20091202
  Receipt Date: 20091130
  Transmission Date: 20100525
  Serious: Yes (Death, Life-Threatening, Hospitalization)
  Sender: FDA-Public Use
  Company Number: GXKR2009DE12876

PATIENT
  Age: 88 Year
  Sex: Female

DRUGS (12)
  1. TRIARESE (NGX) [Suspect]
     Dosage: 50/25 MG DAILY
     Route: 048
  2. FUROSEMIDE (NGX) [Suspect]
     Dosage: 40 MG, QD
     Route: 048
  3. ISOPTIN [Suspect]
     Dosage: 120 MG, QD
     Route: 048
  4. DELIX [Suspect]
     Dosage: 5 MG, QD
     Route: 048
  5. DOMINAL ^ASTA^ [Suspect]
     Dosage: 80 MG, QD
     Route: 048
     Dates: end: 20080213
  6. DOMINAL ^ASTA^ [Suspect]
     Dosage: 40 MG, QD
     Route: 048
     Dates: start: 20080305
  7. DOMINAL ^ASTA^ [Suspect]
     Dosage: 40 MG, QD
     Route: 048
     Dates: start: 20080307
  8. DOMINAL ^ASTA^ [Suspect]
     Dosage: 80 MG, QD
     Route: 048
     Dates: start: 20080309
  9. RISPERDAL [Suspect]
     Dosage: 1 MG, QD
     Route: 048
     Dates: start: 20080227, end: 20080303
  10. RISPERDAL [Suspect]
     Dosage: 0.5 MG, QD
     Route: 048
     Dates: start: 20080304
  11. MOTILIUM [Concomitant]
     Dosage: 20 MG, QD
     Route: 048
     Dates: start: 20080305
  12. CIPROFLOXACIN [Concomitant]
     Dosage: 500 MG, QD
     Route: 048
     Dates: start: 20080304

REACTIONS (1)
  - DEATH [None]
